FAERS Safety Report 11704826 (Version 4)
Quarter: 2016Q3

REPORT INFORMATION
  Report Type: Spontaneous
  Country: US (occurrence: US)
  Receive Date: 20151106
  Receipt Date: 20160919
  Transmission Date: 20161109
  Serious: Yes (Life-Threatening, Hospitalization, Disabling)
  Sender: FDA-Public Use
  Company Number: US-BAYER-2015-455441

PATIENT
  Age: 50 Year
  Sex: Female
  Weight: 99.77 kg

DRUGS (23)
  1. PROZAC [Concomitant]
     Active Substance: FLUOXETINE HYDROCHLORIDE
  2. LEVOPHED [Concomitant]
     Active Substance: NOREPINEPHRINE BITARTRATE
  3. AMBIEN [Concomitant]
     Active Substance: ZOLPIDEM TARTRATE
     Indication: SLEEP DISORDER
     Dosage: UNK
     Dates: start: 2012
  4. LEVAQUIN [Concomitant]
     Active Substance: LEVOFLOXACIN
  5. TRIAMCINOLONE ACETONIDE. [Concomitant]
     Active Substance: TRIAMCINOLONE ACETONIDE
  6. MELATONIN [Concomitant]
     Active Substance: MELATONIN
  7. NORCO [Concomitant]
     Active Substance: ACETAMINOPHEN\HYDROCODONE BITARTRATE
  8. DOPAMINE [Concomitant]
     Active Substance: DOPAMINE\DOPAMINE HYDROCHLORIDE
  9. MORPHINE [Concomitant]
     Active Substance: MORPHINE
  10. PROTONIX [Concomitant]
     Active Substance: PANTOPRAZOLE SODIUM
  11. ATORVASTATIN [Concomitant]
     Active Substance: ATORVASTATIN
  12. FLOMAX [Concomitant]
     Active Substance: TAMSULOSIN HYDROCHLORIDE
  13. COLACE [Concomitant]
     Active Substance: DOCUSATE SODIUM
  14. RITALIN [Concomitant]
     Active Substance: METHYLPHENIDATE HYDROCHLORIDE
  15. LEVOFLOXACIN. [Concomitant]
     Active Substance: LEVOFLOXACIN
  16. YASMIN [Suspect]
     Active Substance: DROSPIRENONE\ETHINYL ESTRADIOL
     Indication: PREMENSTRUAL SYNDROME
     Dosage: UNK
     Dates: start: 201101, end: 20140211
  17. ACETAMINOPHEN. [Concomitant]
     Active Substance: ACETAMINOPHEN
  18. LOVASTATIN. [Concomitant]
     Active Substance: LOVASTATIN
  19. PANTOPRAZOLE [Concomitant]
     Active Substance: PANTOPRAZOLE SODIUM
  20. LIPITOR [Concomitant]
     Active Substance: ATORVASTATIN CALCIUM
  21. MIRAPEX [Concomitant]
     Active Substance: PRAMIPEXOLE DIHYDROCHLORIDE
  22. URECHOLINE [Concomitant]
     Active Substance: BETHANECHOL CHLORIDE
  23. TYLENOL [Concomitant]
     Active Substance: ACETAMINOPHEN
     Indication: HEADACHE

REACTIONS (45)
  - Laceration [None]
  - Urinary tract infection [Recovered/Resolved]
  - Dysphagia [None]
  - Dysarthria [None]
  - Brain oedema [None]
  - Cognitive disorder [None]
  - Memory impairment [None]
  - Cerebrovascular accident [None]
  - Brain midline shift [None]
  - Lethargy [None]
  - Balance disorder [None]
  - Pain in extremity [Recovered/Resolved]
  - Stress [None]
  - Deep vein thrombosis [Recovering/Resolving]
  - Confusional state [None]
  - Exercise tolerance decreased [None]
  - Hypertonia [None]
  - Mental impairment [None]
  - Disorientation [None]
  - Hemiplegia [None]
  - Facial paralysis [None]
  - Coordination abnormal [None]
  - Muscular weakness [None]
  - Muscle spasticity [None]
  - Emotional distress [None]
  - Depression [None]
  - Gaze palsy [None]
  - Neurologic neglect syndrome [None]
  - Gait disturbance [None]
  - Thrombophlebitis superficial [Recovered/Resolved]
  - Asthenia [None]
  - Cerebral haemorrhage [None]
  - Anxiety [None]
  - Fear [None]
  - Urinary retention [Recovered/Resolved]
  - Hemiparesis [None]
  - Vascular occlusion [None]
  - Dysprosody [None]
  - Monoparesis [None]
  - Impaired driving ability [None]
  - Scar [None]
  - Speech disorder [None]
  - Arthralgia [None]
  - Periarthritis [None]
  - Grief reaction [None]

NARRATIVE: CASE EVENT DATE: 20140211
